FAERS Safety Report 6184267-8 (Version None)
Quarter: 2009Q2

REPORT INFORMATION
  Report Type: 
  Country: None (occurrence: None)
  Receive Date: 20090430
  Receipt Date: 20080703
  Transmission Date: 20091009
  Serious: Yes (Other)
  Sender: FDA-Public Use
  Company Number: 031266

PATIENT
  Sex: Female

DRUGS (2)
  1. CENESTIN [Suspect]
     Dosage: ORAL
     Route: 048
  2. COMBIPATCH [Suspect]

REACTIONS (1)
  - BREAST CANCER [None]
